FAERS Safety Report 8875689 (Version 3)
Quarter: 2014Q3

REPORT INFORMATION
  Report Type: Report from Study
  Country: JP (occurrence: JP)
  Receive Date: 20121030
  Receipt Date: 20140919
  Transmission Date: 20150326
  Serious: Yes (Death, Hospitalization, Other)
  Sender: FDA-Public Use
  Company Number: JP-ROCHE-1149073

PATIENT
  Age: 81 Year
  Sex: Female
  Weight: 44 kg

DRUGS (20)
  1. OMEPRAL [Concomitant]
     Active Substance: OMEPRAZOLE
     Route: 065
     Dates: start: 20091202, end: 20100602
  2. PREDNISOLONE. [Concomitant]
     Active Substance: PREDNISOLONE
     Route: 065
     Dates: end: 20100721
  3. AMARYL [Concomitant]
     Active Substance: GLIMEPIRIDE
     Route: 065
     Dates: start: 20091202, end: 20100602
  4. OMEPRAL [Concomitant]
     Active Substance: OMEPRAZOLE
     Route: 065
     Dates: end: 20100721
  5. OMALIZUMAB [Suspect]
     Active Substance: OMALIZUMAB
     Dosage: 5TH SHOT
     Route: 065
     Dates: start: 20100319
  6. OMALIZUMAB [Suspect]
     Active Substance: OMALIZUMAB
     Dosage: 6TH SHOT
     Route: 065
     Dates: start: 20100522
  7. MONTELUKAST [Concomitant]
     Active Substance: MONTELUKAST SODIUM
     Route: 065
     Dates: start: 20090601, end: 20100721
  8. MEPTIN [Concomitant]
     Active Substance: PROCATEROL HYDROCHLORIDE
     Route: 065
     Dates: start: 20090925
  9. OMALIZUMAB [Suspect]
     Active Substance: OMALIZUMAB
     Dosage: 2ND SHOT
     Route: 065
     Dates: start: 20091228
  10. OMALIZUMAB [Suspect]
     Active Substance: OMALIZUMAB
     Dosage: 3RD SHOT
     Route: 065
     Dates: start: 20100125
  11. PREDNISOLONE. [Concomitant]
     Active Substance: PREDNISOLONE
     Route: 065
     Dates: start: 20090727
  12. OMALIZUMAB [Suspect]
     Active Substance: OMALIZUMAB
     Indication: ASTHMA
     Route: 058
     Dates: start: 20091202
  13. THEO-DUR [Concomitant]
     Active Substance: THEOPHYLLINE
     Route: 065
     Dates: start: 20090601, end: 20100721
  14. OMALIZUMAB [Suspect]
     Active Substance: OMALIZUMAB
     Dosage: 4TH SHOT
     Route: 065
     Dates: start: 20100222
  15. ADOAIR [Concomitant]
     Active Substance: FLUTICASONE PROPIONATE\SALMETEROL XINAFOATE
     Route: 065
     Dates: start: 20090601
  16. BLOPRESS [Concomitant]
     Active Substance: CANDESARTAN CILEXETIL
     Route: 065
     Dates: end: 20100721
  17. MEPTIN [Concomitant]
     Active Substance: PROCATEROL HYDROCHLORIDE
     Route: 065
     Dates: end: 20100222
  18. BENET [Concomitant]
     Active Substance: RISEDRONIC ACID
     Route: 065
     Dates: start: 20091202, end: 20100602
  19. PREDNISOLONE. [Concomitant]
     Active Substance: PREDNISOLONE
     Route: 065
     Dates: end: 20100419
  20. BLOPRESS [Concomitant]
     Active Substance: CANDESARTAN CILEXETIL
     Route: 065
     Dates: start: 20091202, end: 20100602

REACTIONS (3)
  - Asthma [Fatal]
  - Immunodeficiency [Unknown]
  - Pulmonary mycosis [Fatal]

NARRATIVE: CASE EVENT DATE: 20100522
